FAERS Safety Report 9633369 (Version 1)
Quarter: 2013Q4

REPORT INFORMATION
  Report Type: Spontaneous
  Country: BR (occurrence: BR)
  Receive Date: 20131021
  Receipt Date: 20131021
  Transmission Date: 20140711
  Serious: Yes (Other)
  Sender: FDA-Public Use
  Company Number: BR-SA-2013SA103690

PATIENT
  Sex: Female
  Weight: 77 kg

DRUGS (7)
  1. LANTUS [Suspect]
     Indication: TYPE 2 DIABETES MELLITUS
     Dosage: MORNING AND AT NIGHT
     Route: 058
     Dates: start: 2008
  2. CLIKSTAR [Concomitant]
     Indication: DEVICE THERAPY
     Dates: start: 2008
  3. MECLOZINE HYDROCHLORIDE [Concomitant]
     Indication: LABYRINTHITIS
     Dosage: STRENGTH:25 MG
     Route: 048
  4. CLOMIPRAMINE [Concomitant]
     Indication: PANIC DISORDER
     Dosage: STRENGTH: 25 MG
     Route: 048
  5. LAMOTRIGINE [Concomitant]
     Indication: PANIC DISORDER
     Dosage: STRENGTH: 100 MG
     Route: 048
  6. PAROXETINE [Concomitant]
     Indication: DEPRESSION
     Dosage: STRENGTH: 30 MG
     Route: 048
  7. INSULIN LISPRO [Concomitant]
     Indication: TYPE 2 DIABETES MELLITUS
     Dosage: 10 IU IN THE MORNING, 10 IU IN THE AFTERNOON AND 10 IU IN THE NIGHT
     Route: 058

REACTIONS (4)
  - Polyneuropathy [Recovered/Resolved]
  - Neuralgia [Recovered/Resolved]
  - Pain in extremity [Recovered/Resolved]
  - Off label use [Unknown]
